FAERS Safety Report 11119535 (Version 1)
Quarter: 2015Q2

REPORT INFORMATION
  Report Type: Spontaneous
  Country: US (occurrence: US)
  Receive Date: 20150518
  Receipt Date: 20150518
  Transmission Date: 20150821
  Serious: Yes (Other)
  Sender: FDA-Public Use
  Company Number: US-ASTRAZENECA-2015SE43972

PATIENT
  Sex: Male

DRUGS (2)
  1. TANZEUM [Concomitant]
     Active Substance: ALBIGLUTIDE
  2. BYDUREON [Suspect]
     Active Substance: EXENATIDE

REACTIONS (1)
  - Hypoglycaemia [Unknown]
